FAERS Safety Report 8082128-0 (Version None)
Quarter: 2012Q1

REPORT INFORMATION
  Report Type: 
  Country: None (occurrence: None)
  Receive Date: 20120127
  Receipt Date: 20110207
  Transmission Date: 20120608
  Serious: No
  Sender: FDA-Public Use
  Company Number: US-ABBOTT-11P-163-0704155-00

PATIENT
  Sex: Female
  Weight: 89.892 kg

DRUGS (2)
  1. PENTASA [Concomitant]
     Indication: CROHN'S DISEASE
     Dosage: TAKES SIX DAILY DOSES
  2. HUMIRA [Suspect]
     Indication: CROHN'S DISEASE
     Route: 058
     Dates: start: 20100701, end: 20110119

REACTIONS (7)
  - PAIN [None]
  - HYPOPHAGIA [None]
  - STRESS [None]
  - NAUSEA [None]
  - DIARRHOEA [None]
  - MUSCLE SPASMS [None]
  - ABDOMINAL DISTENSION [None]
